FAERS Safety Report 7781620-3 (Version None)
Quarter: 2011Q3

REPORT INFORMATION
  Report Type: 
  Country: None (occurrence: None)
  Receive Date: 20110927
  Receipt Date: 20110520
  Transmission Date: 20111222
  Serious: No
  Sender: FDA-Public Use
  Company Number: US-BAYER-2011-044715

PATIENT
  Sex: Female
  Weight: 134 kg

DRUGS (6)
  1. ACETYLSALICYLIC ACID SRT [Concomitant]
  2. LIPITOR [Concomitant]
     Dosage: UNK
  3. SYNTHROID [Concomitant]
  4. METHYLTESTOST [Concomitant]
     Dosage: UNK UNK, QOD
     Route: 048
  5. ALEVE (CAPLET) [Suspect]
     Dosage: 2 U, QOD
     Route: 048
     Dates: start: 20110519
  6. BENICAR [Concomitant]
     Dosage: UNK UNK, QOD
     Route: 048

REACTIONS (1)
  - DRUG INEFFECTIVE [None]
